FAERS Safety Report 23423323 (Version 1)
Quarter: 2024Q1

REPORT INFORMATION
  Report Type: Spontaneous
  Country: US (occurrence: None)
  Receive Date: 20240119
  Receipt Date: 20240119
  Transmission Date: 20240409
  Serious: Yes (Life-Threatening, Hospitalization, Disabling, Other)
  Sender: FDA-Public Use
  Company Number: None

PATIENT
  Age: 38 Year
  Sex: Female
  Weight: 90 kg

DRUGS (2)
  1. MONTELUKAST [Suspect]
     Active Substance: MONTELUKAST SODIUM
     Indication: Asthma
     Dates: start: 20210101, end: 20240116
  2. MONTELUKAST [Suspect]
     Active Substance: MONTELUKAST SODIUM
     Indication: Multiple allergies

REACTIONS (19)
  - Mental disorder [None]
  - Compulsive handwashing [None]
  - Thinking abnormal [None]
  - Fear [None]
  - Depression [None]
  - Anxiety [None]
  - Insomnia [None]
  - Asthenia [None]
  - Apathy [None]
  - Mood swings [None]
  - Nightmare [None]
  - Autoimmune disorder [None]
  - Headache [None]
  - Head discomfort [None]
  - Arthralgia [None]
  - Visual impairment [None]
  - Panic attack [None]
  - Loss of consciousness [None]
  - Anger [None]

NARRATIVE: CASE EVENT DATE: 20240101
